FAERS Safety Report 7574591-6 (Version None)
Quarter: 2011Q2

REPORT INFORMATION
  Report Type: 
  Country: None (occurrence: None)
  Receive Date: 20110627
  Receipt Date: 20091220
  Transmission Date: 20111010
  Serious: Yes (Death, Hospitalization, Other)
  Sender: FDA-Public Use
  Company Number: US-BAYER-200943121NA

PATIENT
  Age: 63 Year
  Sex: Male
  Weight: 84 kg

DRUGS (17)
  1. RED BLOOD CELLS [Concomitant]
     Dosage: 3 UNITS
     Route: 042
     Dates: start: 20070917, end: 20070917
  2. LOPRESSOR [Concomitant]
     Dosage: 50 MG, QD
     Route: 048
     Dates: end: 20070916
  3. DOPAMINE HCL [Concomitant]
     Dosage: UNK
     Route: 042
     Dates: start: 20070917, end: 20070917
  4. NITROGLYCERIN [Concomitant]
     Dosage: K
     Route: 042
     Dates: start: 20070917, end: 20070917
  5. ASPIRIN [Concomitant]
  6. CRESTOR [Concomitant]
     Dosage: 5 MG
     Dates: end: 20070916
  7. LASIX [Concomitant]
     Dosage: 20 MG QD
     Dates: end: 20070916
  8. PLASMA [Concomitant]
     Dosage: 2 UNITS
     Route: 042
     Dates: start: 20070917, end: 20070917
  9. TRASYLOL [Suspect]
     Indication: MITRAL VALVE REPLACEMENT
  10. TRANDOLAPRIL [Concomitant]
  11. RAMIPRIL [Concomitant]
     Dosage: 2.5 MG QD
     Route: 048
     Dates: end: 20070916
  12. TRASYLOL [Suspect]
     Indication: CORONARY ARTERY BYPASS
     Dosage: 50,000 KIU/HR
     Route: 042
     Dates: start: 20070917, end: 20070917
  13. PLAVIX [Concomitant]
     Dosage: UNK
     Route: 048
  14. LOVENOX [Concomitant]
  15. EPINEPHRINE [Concomitant]
     Dosage: UNK
     Route: 042
     Dates: start: 20070917, end: 20070917
  16. PLATELETS [Concomitant]
     Dosage: 2 UNITS
     Route: 042
     Dates: start: 20070917, end: 20070917
  17. NORMOSOL [Concomitant]
     Dosage: 3800 ML
     Dates: start: 20070917, end: 20070917

REACTIONS (9)
  - ANXIETY [None]
  - UNEVALUABLE EVENT [None]
  - INJURY [None]
  - PAIN [None]
  - DEATH [None]
  - RENAL FAILURE [None]
  - DEPRESSION [None]
  - ANHEDONIA [None]
  - FEAR [None]
